FAERS Safety Report 18964678 (Version 1)
Quarter: 2021Q1

REPORT INFORMATION
  Report Type: Spontaneous
  Country: US (occurrence: US)
  Receive Date: 20210303
  Receipt Date: 20210303
  Transmission Date: 20210420
  Serious: No
  Sender: FDA-Public Use
  Company Number: US-AMNEAL PHARMACEUTICALS-2020-AMRX-04112

PATIENT
  Age: 93 Year
  Sex: Male

DRUGS (4)
  1. RYTARY [Suspect]
     Active Substance: CARBIDOPA\LEVODOPA
     Dosage: 2 CAPSULES, QD
     Route: 048
     Dates: start: 202008
  2. RYTARY [Suspect]
     Active Substance: CARBIDOPA\LEVODOPA
     Indication: PARKINSON^S DISEASE
     Dosage: 3 CAPSULES, QD
     Route: 048
     Dates: start: 202007, end: 202008
  3. SINEMET [Concomitant]
     Active Substance: CARBIDOPA\LEVODOPA
     Indication: PRODUCT USED FOR UNKNOWN INDICATION
     Dosage: UNK
     Route: 065
  4. MIDODRINE [Concomitant]
     Active Substance: MIDODRINE
     Indication: ORTHOSTATIC HYPOTENSION
     Dosage: UNK
     Route: 065

REACTIONS (6)
  - Diplopia [Recovered/Resolved]
  - Feeling abnormal [Recovered/Resolved]
  - Dizziness [Recovered/Resolved]
  - Hypotension [Recovered/Resolved]
  - Incorrect route of product administration [Unknown]
  - Delirium [Recovered/Resolved]

NARRATIVE: CASE EVENT DATE: 202007
